FAERS Safety Report 6464397-3 (Version None)
Quarter: 2009Q4

REPORT INFORMATION
  Report Type: 
  Country: None (occurrence: None)
  Receive Date: 20091201
  Receipt Date: 20091123
  Transmission Date: 20100525
  Serious: Yes (Hospitalization)
  Sender: FDA-Public Use
  Company Number: US-JNJFOC-20091107298

PATIENT
  Sex: Female
  Weight: 104.33 kg

DRUGS (5)
  1. DURAGESIC-100 [Suspect]
     Indication: PAIN
     Dosage: FOUR 100 UG/HR PATCHES
     Route: 062
  2. PANCREASE MT 4 [Concomitant]
     Indication: PANCREATITIS
     Route: 048
  3. COMPAZINE [Concomitant]
     Indication: NAUSEA
     Route: 048
  4. ATIVAN [Concomitant]
     Indication: SCIATICA
     Route: 048
  5. DILAUDID [Concomitant]
     Indication: PAIN
     Route: 048

REACTIONS (3)
  - DYSPNOEA [None]
  - SWELLING FACE [None]
  - THROMBOSIS [None]
